FAERS Safety Report 25211477 (Version 2)
Quarter: 2025Q2

REPORT INFORMATION
  Report Type: Report from Study
  Country: DE (occurrence: DE)
  Receive Date: 20250418
  Receipt Date: 20250507
  Transmission Date: 20250716
  Serious: Yes (Hospitalization, Other)
  Sender: ABBVIE
  Company Number: DE-ABBVIE-6229423

PATIENT
  Sex: Male
  Weight: 76 kg

DRUGS (3)
  1. RINVOQ [Suspect]
     Active Substance: UPADACITINIB
     Indication: Neurodermatitis
     Route: 048
     Dates: start: 20250107
  2. RINVOQ [Suspect]
     Active Substance: UPADACITINIB
     Indication: Neurodermatitis
     Route: 048
     Dates: start: 20240909, end: 20241205
  3. ASPIRIN [Concomitant]
     Active Substance: ASPIRIN
     Indication: Myocardial infarction
     Route: 048
     Dates: start: 2020

REACTIONS (1)
  - Prostate cancer [Recovered/Resolved]

NARRATIVE: CASE EVENT DATE: 20250301
